FAERS Safety Report 6831609-3 (Version None)
Quarter: 2010Q3

REPORT INFORMATION
  Report Type: 
  Country: None (occurrence: None)
  Receive Date: 20100712
  Receipt Date: 20070217
  Transmission Date: 20110219
  Serious: No
  Sender: FDA-Public Use
  Company Number: US-PFIZER INC-2007014880

PATIENT
  Sex: Male
  Weight: 99.79 kg

DRUGS (3)
  1. CHANTIX [Suspect]
     Indication: SMOKING CESSATION THERAPY
     Dosage: 0.5MG BID EVERYDAY
     Route: 048
     Dates: start: 20070201
  2. HYDROCODONE BITARTRATE [Concomitant]
  3. METHADONE HCL [Concomitant]

REACTIONS (3)
  - DIZZINESS [None]
  - MALAISE [None]
  - NAUSEA [None]
